FAERS Safety Report 9255177 (Version 1)
Quarter: 2013Q2

REPORT INFORMATION
  Report Type: Spontaneous
  Country: RU (occurrence: RU)
  Receive Date: 20130425
  Receipt Date: 20130425
  Transmission Date: 20140414
  Serious: Yes (Life-Threatening, Hospitalization)
  Sender: FDA-Public Use
  Company Number: RU-BAYER-2013-050864

PATIENT
  Age: 38 Year
  Sex: Female

DRUGS (2)
  1. ASPIRIN [Suspect]
     Dosage: UNK
     Route: 048
  2. DICLOFENAC [DICLOFENAC] [Suspect]
     Dosage: UNK
     Route: 048

REACTIONS (1)
  - Toxic epidermal necrolysis [Recovering/Resolving]
